FAERS Safety Report 14327164 (Version 1)
Quarter: 2017Q4

REPORT INFORMATION
  Report Type: Spontaneous
  Country: DE (occurrence: DE)
  Receive Date: 20171227
  Receipt Date: 20171227
  Transmission Date: 20180321
  Serious: Yes (Death, Other)
  Sender: FDA-Public Use
  Company Number: PHHY2017DE192907

PATIENT

DRUGS (4)
  1. IDARUBICIN [Suspect]
     Active Substance: IDARUBICIN
     Indication: PRODUCT USED FOR UNKNOWN INDICATION
     Dosage: 12 MG/M2
     Route: 065
  2. MERCAPTOPURINE. [Suspect]
     Active Substance: MERCAPTOPURINE
     Indication: PRODUCT USED FOR UNKNOWN INDICATION
     Dosage: 25 MG/M2, DISCONTINUED IF WBC WAS LESS THAN 2.5 X 10^9/L
     Route: 048
  3. METHOTREXATE. [Suspect]
     Active Substance: METHOTREXATE
     Indication: PRODUCT USED FOR UNKNOWN INDICATION
     Dosage: INTRAMUSCULAR METHOTREXATE (15 MG/M?/WK), 15 D/3 MO, 2 Y
     Route: 030
  4. TRETINOIN. [Suspect]
     Active Substance: TRETINOIN
     Indication: PRODUCT USED FOR UNKNOWN INDICATION
     Dosage: 25 MG/M2, UNK
     Route: 048

REACTIONS (12)
  - Cytopenia [Fatal]
  - Cardiotoxicity [Unknown]
  - Acute myeloid leukaemia [Unknown]
  - Chondrosarcoma [Unknown]
  - Infection [Fatal]
  - Hepatotoxicity [Unknown]
  - Acute promyelocytic leukaemia differentiation syndrome [Unknown]
  - Hepatic cirrhosis [Fatal]
  - Haemorrhage [Fatal]
  - Leukaemia recurrent [Recovered/Resolved]
  - Mucosal inflammation [Fatal]
  - Multiple organ dysfunction syndrome [Fatal]
